FAERS Safety Report 8642761 (Version 2)
Quarter: 2014Q1

REPORT INFORMATION
  Report Type: Spontaneous
  Country: US (occurrence: None)
  Receive Date: 20120323
  Receipt Date: 20130305
  Transmission Date: 20141002
  Serious: Yes (Hospitalization)
  Sender: FDA-Public Use
  Company Number: 163-21880-11102910

PATIENT
  Age: 80 Year
  Sex: Male

DRUGS (6)
  1. LENALIDOMIDE [Suspect]
     Indication: PLASMA CELL MYELOMA
     Dosage: 21 CAPS
     Route: 048
     Dates: start: 20110512
  2. BENAZEPRIL HCL [Concomitant]
  3. SINEMET [Concomitant]
  4. LIPITOR [Concomitant]
  5. METOPROLOL TARTRATE [Concomitant]
  6. AMLODIPINE [Concomitant]

REACTIONS (1)
  - Thrombosis [None]
